FAERS Safety Report 12244545 (Version 1)
Quarter: 2016Q2

REPORT INFORMATION
  Report Type: Spontaneous
  Country: BE (occurrence: BE)
  Receive Date: 20160407
  Receipt Date: 20160407
  Transmission Date: 20160815
  Serious: Yes (Other)
  Sender: FDA-Public Use
  Company Number: BE-ACCORD-039220

PATIENT
  Age: 61 Year
  Sex: Male

DRUGS (7)
  1. ETOPOSIDE. [Suspect]
     Active Substance: ETOPOSIDE
     Indication: NON-HODGKIN^S LYMPHOMA
     Dosage: 15 MG/M2 ON DAY 2,3,4 AND 5 (LOW-DOSE BEAM)?ALSO RECEIVED 200 MG/M2 DAY 2-5
  2. CYTARABINE/CYTARABINE HYDROCHLORIDE/CYTARABINE OCFOSFATE [Suspect]
     Active Substance: CYTARABINE
     Indication: NON-HODGKIN^S LYMPHOMA
     Dosage: 2 X 100 MG/M2 ON DAY 2,3,4 AND 5 (LOW-DOSE BEAM)?ALSO RECEIVED 2 X 200 MG/M2 DAY 2-5
  3. CISPLATIN. [Suspect]
     Active Substance: CISPLATIN
     Indication: NON-HODGKIN^S LYMPHOMA
  4. CARMUSTINE [Suspect]
     Active Substance: CARMUSTINE
     Indication: NON-HODGKIN^S LYMPHOMA
     Dosage: BIS-CHLOROETHYLNITROSOUREA.?60 MG/M2 ON DAY 1 (LOW-DOSE BEAM)?ALSO RECEIVED 300 MG/M2 ON DAY 1
  5. RITUXIMAB [Suspect]
     Active Substance: RITUXIMAB
     Indication: NON-HODGKIN^S LYMPHOMA
  6. DEXAMETHASONE. [Suspect]
     Active Substance: DEXAMETHASONE
     Indication: NON-HODGKIN^S LYMPHOMA
  7. MELPHALAN [Suspect]
     Active Substance: MELPHALAN
     Indication: NON-HODGKIN^S LYMPHOMA
     Dosage: 30 MG/M2 ON DAY 6 (LOW-DOSE BEAM)?ALSO RECEIVED 140 MG/M2 DAY 6

REACTIONS (2)
  - Tinnitus [Unknown]
  - Kaposi^s sarcoma [Recovered/Resolved]
